FAERS Safety Report 7148610-5 (Version None)
Quarter: 2010Q4

REPORT INFORMATION
  Report Type: 
  Country: None (occurrence: None)
  Receive Date: 20101209
  Receipt Date: 20100520
  Transmission Date: 20110411
  Serious: No
  Sender: FDA-Public Use
  Company Number: A0860618A

PATIENT
  Age: 46 Year
  Sex: Female

DRUGS (7)
  1. AVANDAMET [Suspect]
     Dosage: 1TAB PER DAY
     Route: 048
     Dates: start: 20090501
  2. ATENOLOL [Concomitant]
  3. CRESTOR [Concomitant]
  4. SYNTHROID [Concomitant]
  5. GREEN TEA [Concomitant]
  6. VITAMIN E [Concomitant]
  7. FISH OIL [Concomitant]

REACTIONS (1)
  - BLOOD GLUCOSE INCREASED [None]
